FAERS Safety Report 21379370 (Version 1)
Quarter: 2022Q3

REPORT INFORMATION
  Report Type: Spontaneous
  Country: IN (occurrence: IN)
  Receive Date: 20220927
  Receipt Date: 20220927
  Transmission Date: 20221027
  Serious: Yes (Hospitalization)
  Sender: FDA-Public Use
  Company Number: IN-MACLEODS PHARMACEUTICALS US LTD-MAC2022037363

PATIENT

DRUGS (10)
  1. QUETIAPINE [Suspect]
     Active Substance: QUETIAPINE
     Indication: Bipolar disorder
     Dosage: 100 MILLIGRAM, BID
     Route: 048
  2. SERTRALINE [Suspect]
     Active Substance: SERTRALINE HYDROCHLORIDE
     Indication: Bipolar disorder
     Dosage: 50 MILLIGRAM, QD
     Route: 048
  3. TRAZODONE [Suspect]
     Active Substance: TRAZODONE HYDROCHLORIDE
     Indication: Bipolar disorder
     Dosage: 150 MILLIGRAM, QD
     Route: 048
  4. DIPHENHYDRAMINE [Concomitant]
     Active Substance: DIPHENHYDRAMINE
     Indication: Sedation
     Dosage: 50 MILLIGRAM
     Route: 030
  5. LORAZEPAM [Concomitant]
     Active Substance: LORAZEPAM
     Indication: Bipolar disorder
     Dosage: 2 MILLIGRAM, TID (Q8H)
     Route: 030
  6. LORAZEPAM [Concomitant]
     Active Substance: LORAZEPAM
     Indication: Sedation
     Dosage: 0.5 MILLIGRAM, PRN (EVERY SIX HOURS PRO RE NATA)
     Route: 048
  7. LORAZEPAM [Concomitant]
     Active Substance: LORAZEPAM
     Dosage: 2 MILLIGRAM, QID (Q6H, INCREASED DOSE)
     Route: 030
  8. HALOPERIDOL [Concomitant]
     Active Substance: HALOPERIDOL
     Indication: Sedation
     Dosage: 5 MILLIGRAM
     Route: 030
  9. MEMANTINE [Concomitant]
     Active Substance: MEMANTINE
     Indication: Bipolar disorder
     Dosage: 10  MILLIGRAM, QD
     Route: 048
  10. DONEPEZIL [Concomitant]
     Active Substance: DONEPEZIL
     Indication: Bipolar disorder
     Dosage: 10 MILLIGRAM, QD QUAQUE HORA SOMNI (QHS)
     Route: 048

REACTIONS (1)
  - Serotonin syndrome [Recovered/Resolved]
